FAERS Safety Report 9349767 (Version 2)
Quarter: 2013Q3

REPORT INFORMATION
  Report Type: Spontaneous
  Country: US (occurrence: US)
  Receive Date: 20130614
  Receipt Date: 20130722
  Transmission Date: 20140515
  Serious: No
  Sender: FDA-Public Use
  Company Number: US-ASTRAZENECA-2013SE38560

PATIENT
  Age: 30 Year
  Sex: Female
  Weight: 97.5 kg

DRUGS (6)
  1. PULMICORT FLEXHALER [Suspect]
     Indication: ASTHMA
     Route: 055
     Dates: start: 201107
  2. RHINOCORT AQUA [Suspect]
     Indication: MULTIPLE ALLERGIES
     Route: 045
     Dates: start: 201009
  3. ZANTAC [Concomitant]
     Route: 048
  4. ALBUTEROL [Concomitant]
     Indication: ASTHMA
  5. XOPENEX [Concomitant]
     Indication: ASTHMA
  6. CALCIUM SUPPLEMENT [Concomitant]

REACTIONS (2)
  - Exposure during pregnancy [Recovered/Resolved]
  - Sinusitis [Recovering/Resolving]
